FAERS Safety Report 9674828 (Version 2)
Quarter: 2013Q4

REPORT INFORMATION
  Report Type: Report from Study
  Country: DE (occurrence: DE)
  Receive Date: 20131107
  Receipt Date: 20131107
  Transmission Date: 20140711
  Serious: Yes (Hospitalization, Other)
  Sender: FDA-Public Use
  Company Number: PHHO2007DE17513

PATIENT
  Sex: 0

DRUGS (2)
  1. FTY 720 [Suspect]
     Indication: MULTIPLE SCLEROSIS
     Dosage: 1.25 MG, QD
     Route: 048
     Dates: start: 20070320, end: 20071022
  2. FTY 720 [Suspect]
     Dosage: 1.25 MG, QD
     Route: 048
     Dates: start: 20071026

REACTIONS (2)
  - Dyspnoea [Recovered/Resolved]
  - Hyperventilation [Unknown]
